FAERS Safety Report 20135477 (Version 1)
Quarter: 2021Q4

REPORT INFORMATION
  Report Type: Spontaneous
  Country: US (occurrence: None)
  Receive Date: 20211201
  Receipt Date: 20211201
  Transmission Date: 20220303
  Serious: Yes (Death)
  Sender: FDA-Public Use
  Company Number: None

PATIENT
  Age: 59 Year
  Sex: Female

DRUGS (1)
  1. CAPECITABINE [Suspect]
     Active Substance: CAPECITABINE
     Indication: Product used for unknown indication
     Dosage: TAKE 3 TABLETS BY MOUTH EVERY 12 HOURS FOR 14 DAYS EVERY 21 DAY CYCLE . **TAKE AFTER MEALS WITH A FU
     Route: 048
     Dates: start: 20211008, end: 20211008

REACTIONS (1)
  - Death [None]

NARRATIVE: CASE EVENT DATE: 20211008
